FAERS Safety Report 12656780 (Version 1)
Quarter: 2016Q3

REPORT INFORMATION
  Report Type: Spontaneous
  Country: PL (occurrence: PL)
  Receive Date: 20160816
  Receipt Date: 20160816
  Transmission Date: 20161109
  Serious: Yes (Other)
  Sender: FDA-Public Use
  Company Number: PL-MYLANLABS-2016M1033917

PATIENT

DRUGS (2)
  1. CARBOPLATIN. [Suspect]
     Active Substance: CARBOPLATIN
     Indication: CHEMOTHERAPY
     Dosage: AUC 6; EVERY 21 DAYS
     Route: 065
     Dates: start: 20120817, end: 20130118
  2. PACLITAXEL. [Suspect]
     Active Substance: PACLITAXEL
     Indication: CHEMOTHERAPY
     Dosage: AUC 6; EVERY 21 DAYS
     Route: 065
     Dates: start: 20120817, end: 20130118

REACTIONS (4)
  - Thrombocytopenia [Unknown]
  - Myalgia [Unknown]
  - Neutropenia [Unknown]
  - Arthralgia [Unknown]
